FAERS Safety Report 7401686-X (Version None)
Quarter: 2011Q2

REPORT INFORMATION
  Report Type: 
  Country: None (occurrence: None)
  Receive Date: 20110408
  Receipt Date: 20110331
  Transmission Date: 20111010
  Serious: No
  Sender: FDA-Public Use
  Company Number: US-BIOGENIDEC-2011BI012534

PATIENT
  Sex: Female

DRUGS (1)
  1. AVONEX [Suspect]
     Indication: MULTIPLE SCLEROSIS
     Route: 030
     Dates: start: 20100519, end: 20101018

REACTIONS (6)
  - INFLUENZA LIKE ILLNESS [None]
  - APHASIA [None]
  - PRURITUS GENERALISED [None]
  - HYPOAESTHESIA [None]
  - CONFUSIONAL STATE [None]
  - BAND SENSATION [None]
